FAERS Safety Report 19058835 (Version 3)
Quarter: 2021Q2

REPORT INFORMATION
  Report Type: Spontaneous
  Country: TW (occurrence: TW)
  Receive Date: 20210325
  Receipt Date: 20210421
  Transmission Date: 20210717
  Serious: Yes (Hospitalization, Other)
  Sender: FDA-Public Use
  Company Number: TW-JNJFOC-20210336614

PATIENT
  Age: 28 Year
  Sex: Female
  Weight: 60 kg

DRUGS (7)
  1. TRIIODOTHYRONINE [Suspect]
     Active Substance: LIOTHYRONINE SODIUM
     Indication: OBESITY CARDIOMYOPATHY
     Route: 065
     Dates: start: 201803
  2. HYDROCHLOROTHIAZIDE. [Concomitant]
     Active Substance: HYDROCHLOROTHIAZIDE
     Indication: OBESITY CARDIOMYOPATHY
     Route: 065
     Dates: start: 201803
  3. FLUOXETINE [Concomitant]
     Active Substance: FLUOXETINE HYDROCHLORIDE
     Indication: OBESITY CARDIOMYOPATHY
     Route: 065
     Dates: start: 201803
  4. PSEUDOEPHEDRINE. [Concomitant]
     Active Substance: PSEUDOEPHEDRINE HYDROCHLORIDE
     Indication: OBESITY CARDIOMYOPATHY
     Route: 065
     Dates: start: 201803
  5. METFORMIN [Suspect]
     Active Substance: METFORMIN HYDROCHLORIDE
     Indication: OBESITY CARDIOMYOPATHY
     Route: 048
     Dates: start: 201803, end: 201807
  6. OXAZOLAM [Concomitant]
     Active Substance: OXAZOLAM
     Indication: OBESITY CARDIOMYOPATHY
     Route: 065
     Dates: start: 201803
  7. TOPAMAX [Suspect]
     Active Substance: TOPIRAMATE
     Indication: OBESITY CARDIOMYOPATHY
     Route: 048
     Dates: start: 201803, end: 201807

REACTIONS (3)
  - Myopathy [Recovered/Resolved]
  - Off label use [Unknown]
  - Product use in unapproved indication [Unknown]

NARRATIVE: CASE EVENT DATE: 201807
